FAERS Safety Report 23556793 (Version 1)
Quarter: 2024Q1

REPORT INFORMATION
  Report Type: Spontaneous
  Country: LB (occurrence: LB)
  Receive Date: 20240223
  Receipt Date: 20240223
  Transmission Date: 20240410
  Serious: Yes (Other)
  Sender: FDA-Public Use
  Company Number: LB-SUN PHARMACEUTICAL INDUSTRIES LTD-2024RR-432120

PATIENT
  Age: 14 Month
  Sex: Female
  Weight: 8.2 kg

DRUGS (9)
  1. MIDAZOLAM [Suspect]
     Active Substance: MIDAZOLAM
     Indication: Sedation
     Dosage: 0.05 MILLIGRAM/KILOGRAM/HOUR
     Route: 065
  2. MIDAZOLAM [Suspect]
     Active Substance: MIDAZOLAM
     Dosage: 0.2 MILLIGRAM/KG/HOUR
     Route: 065
  3. MORPHINE [Suspect]
     Active Substance: MORPHINE
     Indication: Sedation
     Dosage: 0.02 MILLIGRAM/ KG/ HOUR
     Route: 065
  4. MORPHINE [Suspect]
     Active Substance: MORPHINE
     Dosage: 0.1 MILLIGRAM/ KG/ HOUR
     Route: 065
  5. EPINEPHRINE [Suspect]
     Active Substance: EPINEPHRINE
     Indication: Low cardiac output syndrome
     Dosage: UNK
     Route: 065
  6. NOREPINEPHRINE [Suspect]
     Active Substance: NOREPINEPHRINE
     Indication: Low cardiac output syndrome
     Dosage: UNK
     Route: 065
  7. DEXMEDETOMIDINE [Suspect]
     Active Substance: DEXMEDETOMIDINE
     Indication: Sedation
     Dosage: 0.4 MCG/HR/KG
     Route: 041
  8. FENTANYL [Suspect]
     Active Substance: FENTANYL\FENTANYL CITRATE
     Indication: Pain
     Dosage: UNK
     Route: 065
  9. MILRINONE [Suspect]
     Active Substance: MILRINONE
     Indication: Low cardiac output syndrome
     Dosage: UNK
     Route: 065

REACTIONS (3)
  - Drug ineffective [Unknown]
  - Acute kidney injury [Unknown]
  - Therapeutic product effect incomplete [Unknown]
